FAERS Safety Report 17503606 (Version 1)
Quarter: 2020Q1

REPORT INFORMATION
  Report Type: Spontaneous
  Country: US (occurrence: US)
  Receive Date: 20200305
  Receipt Date: 20200305
  Transmission Date: 20200409
  Serious: Yes (Hospitalization)
  Sender: FDA-Public Use
  Company Number: US-TEVA-2020-US-1193415

PATIENT
  Age: 30 Year
  Sex: Male

DRUGS (7)
  1. ATROPINE. [Suspect]
     Active Substance: ATROPINE
     Indication: PULSELESS ELECTRICAL ACTIVITY
     Route: 065
  2. EPINEPHRINE. [Suspect]
     Active Substance: EPINEPHRINE
     Indication: PULSELESS ELECTRICAL ACTIVITY
     Route: 065
  3. SODIUM BICARBONATE. [Suspect]
     Active Substance: SODIUM BICARBONATE
     Indication: PULSELESS ELECTRICAL ACTIVITY
     Route: 065
  4. LORAZEPAM. [Concomitant]
     Active Substance: LORAZEPAM
     Route: 042
  5. CALCIUM [Suspect]
     Active Substance: CALCIUM
     Indication: PULSELESS ELECTRICAL ACTIVITY
     Route: 065
  6. MAGNESIUM [Suspect]
     Active Substance: MAGNESIUM
     Indication: PULSELESS ELECTRICAL ACTIVITY
     Route: 065
  7. NITROUS OXIDE. [Concomitant]
     Active Substance: NITROUS OXIDE
     Route: 065

REACTIONS (1)
  - Drug ineffective [Unknown]
